FAERS Safety Report 25998192 (Version 1)
Quarter: 2025Q4

REPORT INFORMATION
  Report Type: Spontaneous
  Country: US (occurrence: US)
  Receive Date: 20251105
  Receipt Date: 20251105
  Transmission Date: 20260117
  Serious: No
  Sender: CELLTRION
  Company Number: US-CELLTRION INC.-2025US016469

PATIENT

DRUGS (1)
  1. INFLECTRA [Suspect]
     Active Substance: INFLIXIMAB-DYYB
     Indication: Product use in unapproved indication
     Dosage: 100 MG
     Route: 065

REACTIONS (1)
  - Off label use [Unknown]
